FAERS Safety Report 15362950 (Version 1)
Quarter: 2018Q3

REPORT INFORMATION
  Report Type: Report from Study
  Country: KR (occurrence: KR)
  Receive Date: 20180907
  Receipt Date: 20180907
  Transmission Date: 20181010
  Serious: Yes (Other)
  Sender: FDA-Public Use
  Company Number: KR-SA-2018SA199457

PATIENT
  Age: 70 Year
  Sex: Female

DRUGS (2)
  1. INSULIN GLARGINE [Suspect]
     Active Substance: INSULIN GLARGINE
     Indication: DIABETES MELLITUS
     Dosage: 20 U, QD
     Route: 058
     Dates: start: 201807
  2. NOVORAPID [Suspect]
     Active Substance: INSULIN ASPART
     Indication: DIABETES MELLITUS
     Dosage: 6 U, TID
     Route: 058
     Dates: start: 201807, end: 20180731

REACTIONS (4)
  - Hypoglycaemia [Recovered/Resolved]
  - Depressed level of consciousness [Recovered/Resolved]
  - Cold sweat [Not Recovered/Not Resolved]
  - Injection site bruising [Not Recovered/Not Resolved]

NARRATIVE: CASE EVENT DATE: 201807
